FAERS Safety Report 13433691 (Version 4)
Quarter: 2017Q4

REPORT INFORMATION
  Report Type: Spontaneous
  Country: JP (occurrence: JP)
  Receive Date: 20170412
  Receipt Date: 20171208
  Transmission Date: 20180320
  Serious: Yes (Hospitalization)
  Sender: FDA-Public Use
  Company Number: JP-BAYER-2017-063229

PATIENT
  Age: 84 Year
  Sex: Male
  Weight: 43 kg

DRUGS (3)
  1. LANSOPRAZOLE. [Concomitant]
     Active Substance: LANSOPRAZOLE
     Route: 048
  2. STIVARGA [Suspect]
     Active Substance: REGORAFENIB
     Indication: COLORECTAL CANCER
     Dosage: 120 MG, QD
     Route: 048
     Dates: start: 20170313, end: 20170323
  3. EPINASTINE HYDROCHLORIDE. [Concomitant]
     Active Substance: EPINASTINE HYDROCHLORIDE
     Route: 048

REACTIONS (10)
  - Abdominal abscess [Recovered/Resolved]
  - Abdominal distension [None]
  - Pneumoretroperitoneum [Recovered/Resolved]
  - Pneumonia [Recovering/Resolving]
  - Motor dysfunction [None]
  - Dysstasia [None]
  - Malignant ascites [Not Recovered/Not Resolved]
  - Abdominal pain [None]
  - Vomiting [Recovering/Resolving]
  - Intestinal obstruction [Recovering/Resolving]

NARRATIVE: CASE EVENT DATE: 20170320
